FAERS Safety Report 12492231 (Version 4)
Quarter: 2016Q3

REPORT INFORMATION
  Report Type: Report from Study
  Country: US (occurrence: US)
  Receive Date: 20160623
  Receipt Date: 20160901
  Transmission Date: 20161109
  Serious: Yes (Hospitalization, Other)
  Sender: FDA-Public Use
  Company Number: US-ASTELLAS-2016US013992

PATIENT
  Age: 56 Year
  Sex: Male

DRUGS (21)
  1. MAGNESIUM GLUCONATE [Concomitant]
     Active Substance: MAGNESIUM GLUCONATE
     Indication: PRODUCT USED FOR UNKNOWN INDICATION
     Route: 048
  2. ENZALUTAMIDE [Suspect]
     Active Substance: ENZALUTAMIDE
     Route: 048
     Dates: start: 20160111, end: 20160131
  3. ATIVAN [Concomitant]
     Active Substance: LORAZEPAM
     Indication: NAUSEA
     Dosage: 1 MG, THRICE DAILY AS NEEDED (TAKE ON DAY OF CISPLATIN)
     Route: 048
  4. ZOFRAN [Concomitant]
     Active Substance: ONDANSETRON HYDROCHLORIDE
     Indication: NAUSEA
     Dosage: 8 MG, THRICE DAILY AS NEEDED (TAKE AROUND THE CLOCK)
     Route: 048
  5. DEXAMETHASONE. [Concomitant]
     Active Substance: DEXAMETHASONE
     Indication: VOMITING
  6. GEMCITABINE [Concomitant]
     Active Substance: GEMCITABINE\GEMCITABINE HYDROCHLORIDE
     Indication: PRODUCT USED FOR UNKNOWN INDICATION
     Dosage: UNK UNK, UNKNOWN FREQ. (6 CYCLES)
     Route: 065
     Dates: start: 20150831, end: 20160120
  7. CISPLATIN. [Suspect]
     Active Substance: CISPLATIN
     Dosage: UNK, UNKNOWN FREQ.
     Route: 065
     Dates: start: 20150921
  8. PROCHLORPERAZINE. [Concomitant]
     Active Substance: PROCHLORPERAZINE
     Indication: NAUSEA
     Route: 048
  9. CISPLATIN. [Suspect]
     Active Substance: CISPLATIN
     Dosage: UNK, UNKNOWN FREQ.
     Route: 065
     Dates: start: 20151130
  10. PROCHLORPERAZINE. [Concomitant]
     Active Substance: PROCHLORPERAZINE
     Indication: VOMITING
  11. ENZALUTAMIDE [Suspect]
     Active Substance: ENZALUTAMIDE
     Route: 048
     Dates: start: 20160201, end: 20160425
  12. CISPLATIN. [Suspect]
     Active Substance: CISPLATIN
     Dosage: UNK, UNKNOWN FREQ.
     Route: 065
     Dates: start: 20151012
  13. CISPLATIN. [Suspect]
     Active Substance: CISPLATIN
     Dosage: UNK, UNKNOWN FREQ.
     Route: 065
     Dates: start: 20151109
  14. CISPLATIN. [Suspect]
     Active Substance: CISPLATIN
     Dosage: UNK, UNKNOWN FREQ.
     Route: 065
     Dates: start: 20151221
  15. ATIVAN [Concomitant]
     Active Substance: LORAZEPAM
     Indication: VOMITING
  16. OXYCODONE [Concomitant]
     Active Substance: OXYCODONE
     Indication: PAIN
     Dosage: 10 MG, EVERY 6 HOURS AS NEEDED
     Route: 048
  17. MEGACE [Concomitant]
     Active Substance: MEGESTROL ACETATE
     Indication: DECREASED APPETITE
     Dosage: 40 MG/ML (800 MG, 20 ML), ONCE DAILY
     Route: 048
  18. ZOFRAN [Concomitant]
     Active Substance: ONDANSETRON HYDROCHLORIDE
     Indication: VOMITING
  19. DEXAMETHASONE. [Concomitant]
     Active Substance: DEXAMETHASONE
     Indication: NAUSEA
     Dosage: 4 MG, TWICE DAILY (TAKE ONE TABLET TWICE A DAY ON DAY 2,3,4,5,6)
     Route: 048
  20. ENZALUTAMIDE [Suspect]
     Active Substance: ENZALUTAMIDE
     Indication: BLADDER TRANSITIONAL CELL CARCINOMA
     Route: 048
     Dates: start: 20150831, end: 201601
  21. CISPLATIN. [Suspect]
     Active Substance: CISPLATIN
     Indication: PRODUCT USED FOR UNKNOWN INDICATION
     Dosage: UNK, UNKNOWN FREQ.
     Route: 065
     Dates: start: 20150831

REACTIONS (2)
  - Small intestinal obstruction [Recovered/Resolved]
  - Hyponatraemia [Recovered/Resolved]

NARRATIVE: CASE EVENT DATE: 20160111
